FAERS Safety Report 6314885 (Version 4)
Quarter: 2017Q3

REPORT INFORMATION
  Report Type: Spontaneous
  Country: US (occurrence: US)
  Receive Date: 20070517
  Receipt Date: 20170925
  Transmission Date: 20171128
  Serious: Yes (Hospitalization, Other)
  Sender: FDA-Public Use
  Company Number: US-PFIZER INC-2007037503

PATIENT
  Age: 23 Year
  Sex: Female
  Weight: 45 kg

DRUGS (6)
  1. CELEBREX [Suspect]
     Active Substance: CELECOXIB
     Indication: PAIN MANAGEMENT
     Dosage: 200 MG, 1X/DAY
     Dates: start: 20040324, end: 200404
  2. VIOXX [Suspect]
     Active Substance: ROFECOXIB
     Indication: PAIN MANAGEMENT
     Dosage: 50 MG, 1X/DAY
     Dates: start: 200003, end: 20040429
  3. VIOXX [Suspect]
     Active Substance: ROFECOXIB
     Indication: PAIN
  4. BEXTRA [Suspect]
     Active Substance: VALDECOXIB
     Indication: PAIN MANAGEMENT
     Dosage: 10 MG, 1X/DAY
     Dates: start: 20040201, end: 200404
  5. BEXTRA [Suspect]
     Active Substance: VALDECOXIB
     Indication: PAIN
  6. CELEBREX [Suspect]
     Active Substance: CELECOXIB
     Indication: PAIN

REACTIONS (3)
  - Anxiety [Unknown]
  - Depression [Unknown]
  - Ischaemic stroke [Unknown]

NARRATIVE: CASE EVENT DATE: 20040428
